FAERS Safety Report 18926657 (Version 1)
Quarter: 2021Q1

REPORT INFORMATION
  Report Type: Spontaneous
  Country: US (occurrence: US)
  Receive Date: 20210223
  Receipt Date: 20210223
  Transmission Date: 20210420
  Serious: Yes (Hospitalization, Other)
  Sender: FDA-Public Use
  Company Number: US-CADILA HEALTHCARE LIMITED-US-ZYDUS-041960

PATIENT

DRUGS (15)
  1. PRILOSEC [Concomitant]
     Active Substance: OMEPRAZOLE MAGNESIUM
     Indication: PRODUCT USED FOR UNKNOWN INDICATION
     Dosage: 20 MILLIGRAM,FREQUENCY :ONCE DAILY
     Route: 048
  2. MYCOPHENOLATE MOFETIL. [Concomitant]
     Active Substance: MYCOPHENOLATE MOFETIL
     Indication: DERMATOMYOSITIS
     Dosage: 1500 MILLIGRAM,FREQUENCY :TWICE DAILY
     Route: 048
  3. ASPIRIN. [Concomitant]
     Active Substance: ASPIRIN
     Indication: PRODUCT USED FOR UNKNOWN INDICATION
     Dosage: 81 MILLIGRAM,FREQUENCY :ONCE DAILY
     Route: 048
  4. FOLIC ACID. [Concomitant]
     Active Substance: FOLIC ACID
     Indication: HAEMOLYTIC ANAEMIA
     Dosage: 1 MILLIGRAM,FREQUENCY :ONCE DAILY
     Route: 048
     Dates: start: 2017
  5. SILDENAFIL. [Concomitant]
     Active Substance: SILDENAFIL
     Indication: RAYNAUD^S PHENOMENON
     Dosage: 20 MILLIGRAM,FREQUENCY :THREE TIMES DAILY
     Route: 048
     Dates: start: 2018
  6. NIFEDIPINE. [Concomitant]
     Active Substance: NIFEDIPINE
     Indication: RAYNAUD^S PHENOMENON
     Dosage: 30 MILLIGRAM,FREQUENCY :ONCE DAILY
     Route: 048
     Dates: start: 2018
  7. PREDNISONE. [Concomitant]
     Active Substance: PREDNISONE
     Indication: DERMATOMYOSITIS
     Dosage: 5 MILLIGRAM,FREQUENCY :ONCE DAILY
     Route: 048
     Dates: start: 2017
  8. PLAQUENIL [Suspect]
     Active Substance: HYDROXYCHLOROQUINE SULFATE
     Indication: DERMATOMYOSITIS
     Dosage: 200 MILLIGRAM,FREQUENCY :TWICE DAILY
     Route: 048
     Dates: start: 2017
  9. ATOVAQUONE. [Concomitant]
     Active Substance: ATOVAQUONE
     Indication: ANTIFUNGAL PROPHYLAXIS
     Dosage: 1500 MILLIGRAM,FREQUENCY :ONCE DAILY
     Route: 048
     Dates: start: 2017
  10. ZOLEDRONIC ACID [Concomitant]
     Active Substance: ZOLEDRONIC ACID
     Indication: PRODUCT USED FOR UNKNOWN INDICATION
     Dosage: 5 MILLIGRAM,FREQUENCY :ONCE A YEAR
     Route: 042
  11. VITAMIN B12 [Concomitant]
     Active Substance: CYANOCOBALAMIN
     Indication: PRODUCT USED FOR UNKNOWN INDICATION
     Dosage: 1000 MICROGRAM,FREQUENCY :ONCE DAILY
     Route: 048
  12. BOSENTAN 125 MG TABLETS [Suspect]
     Active Substance: BOSENTAN
     Indication: PULMONARY ARTERIAL HYPERTENSION
     Dosage: 62.5 MILLIGRAM,FREQUENCY :TWICE DAILY
     Route: 048
     Dates: start: 20190611
  13. TACROLIMUS. [Concomitant]
     Active Substance: TACROLIMUS
     Indication: DERMATOMYOSITIS
     Dosage: 2 MG IN MORNING/ 3 MG IN EVENING,FREQUENCY :2 MG IN MORNING/ 3 MG IN EVENING
     Route: 065
  14. CALCIUM+VIT D [Concomitant]
     Indication: PRODUCT USED FOR UNKNOWN INDICATION
     Dosage: 600 MG/400 IU,FREQUENCY :TWICE DAILY
     Route: 065
  15. APIXABAN [Concomitant]
     Active Substance: APIXABAN
     Indication: PRODUCT USED FOR UNKNOWN INDICATION
     Dosage: FREQUENCY :UNK
     Route: 065

REACTIONS (7)
  - Oropharyngeal squamous cell carcinoma [Recovered/Resolved]
  - Immune system disorder [Recovered/Resolved]
  - Pyrexia [Recovered/Resolved]
  - Pain [Recovered/Resolved]
  - Feeling hot [Recovered/Resolved]
  - Mass [Recovered/Resolved]
  - Throat irritation [Recovered/Resolved]

NARRATIVE: CASE EVENT DATE: 201909
